FAERS Safety Report 11415853 (Version 1)
Quarter: 2015Q3

REPORT INFORMATION
  Report Type: Spontaneous
  Country: None (occurrence: None)
  Receive Date: 20150824
  Receipt Date: 20150824
  Transmission Date: 20151125
  Serious: No
  Sender: FDA-Public Use
  Company Number: None

PATIENT
  Age: 75 Year
  Sex: Male

DRUGS (1)
  1. ASA/DIPYRIDA CAP 25-200MG TEVA PHARM [Suspect]
     Active Substance: ASPIRIN\DIPYRIDAMOLE
     Route: 048

REACTIONS (1)
  - Swelling [None]

NARRATIVE: CASE EVENT DATE: 20150822
